FAERS Safety Report 11839079 (Version 1)
Quarter: 2015Q4

REPORT INFORMATION
  Report Type: Spontaneous
  Country: US (occurrence: US)
  Receive Date: 20151216
  Receipt Date: 20151216
  Transmission Date: 20160305
  Serious: Yes (Disabling, Other)
  Sender: FDA-Public Use
  Company Number: US-ZYDUS-009713

PATIENT
  Age: 55 Year
  Sex: Female

DRUGS (2)
  1. ALENDRONIC ACID [Concomitant]
     Active Substance: ALENDRONIC ACID
     Indication: OSTEOPOROSIS
     Route: 065
  2. LEVOFLOXACIN. [Suspect]
     Active Substance: LEVOFLOXACIN
     Indication: URINARY TRACT INFECTION
     Dosage: LEVOFLOXACIN 500 MG/DAY FOR 10 DAYS, THEN A FOURTH COURSE:750 MG FOR 5 DAYS
     Route: 065

REACTIONS (18)
  - Amnesia [Unknown]
  - Alopecia [Unknown]
  - Muscular weakness [Unknown]
  - Cardiovascular symptom [Unknown]
  - Hearing impaired [Unknown]
  - Eye disorder [Unknown]
  - Fatigue [Unknown]
  - Arthralgia [Unknown]
  - Tendon pain [Unknown]
  - Affective disorder [Unknown]
  - Cognitive disorder [Unknown]
  - Headache [Unknown]
  - Neuropathy peripheral [Unknown]
  - Nervous system disorder [Unknown]
  - Pain [Unknown]
  - Tendon disorder [Unknown]
  - Myalgia [Unknown]
  - Confusional state [Unknown]
